FAERS Safety Report 23286732 (Version 1)
Quarter: 2023Q4

REPORT INFORMATION
  Report Type: Other
  Country: CH (occurrence: None)
  Receive Date: 20231212
  Receipt Date: 20231212
  Transmission Date: 20240110
  Serious: Yes (Hospitalization, Other)
  Sender: FDA-Public Use
  Company Number: CH-Encube-000537

PATIENT
  Age: 60 Year
  Sex: Male

DRUGS (3)
  1. TESTOSTERONE [Suspect]
     Active Substance: TESTOSTERONE
     Indication: Hormone therapy
     Dosage: 750-1000 MG PER WEEK
     Route: 030
  2. SUGAMMADEX [Suspect]
     Active Substance: SUGAMMADEX
     Indication: Anaesthesia reversal
     Dosage: 2 MG/KG
  3. ROCURONIUM [Concomitant]
     Active Substance: ROCURONIUM BROMIDE
     Indication: General anaesthesia
     Dosage: 60 MG AT INDUCTION FOLLOWED BY INFUSION OF 0.2 MG/KG/H

REACTIONS (6)
  - Delayed recovery from anaesthesia [Recovered/Resolved]
  - Drug abuse [Unknown]
  - Product use in unapproved indication [Unknown]
  - Inhibitory drug interaction [Unknown]
  - Self-medication [Unknown]
  - Product use issue [Unknown]
